FAERS Safety Report 8780163 (Version 1)
Quarter: 2012Q4

REPORT INFORMATION
  Report Type: Spontaneous
  Country: DK (occurrence: None)
  Receive Date: 20120828
  Receipt Date: 20120828
  Transmission Date: 20130627
  Serious: No
  Sender: FDA-Public Use
  Company Number: 2012MA010467

PATIENT
  Age: 93 Year
  Sex: Female

DRUGS (1)
  1. INDAPAMIDE [Suspect]
     Route: 048
     Dates: start: 20120705, end: 20120705

REACTIONS (2)
  - Malaise [None]
  - Feeling abnormal [None]
